FAERS Safety Report 9305861 (Version 4)
Quarter: 2013Q2

REPORT INFORMATION
  Report Type: Spontaneous
  Country: US (occurrence: US)
  Receive Date: 20130523
  Receipt Date: 20130626
  Transmission Date: 20140414
  Serious: Yes (Other)
  Sender: FDA-Public Use
  Company Number: US-PFIZER INC-2013154087

PATIENT
  Age: 89 Year
  Sex: Female
  Weight: 67.12 kg

DRUGS (5)
  1. NORVASC [Suspect]
     Indication: HYPERTENSION
     Dosage: 5 MG, 1X/DAY
     Dates: start: 2005
  2. NORVASC [Suspect]
     Dosage: 5 MG, 2X/DAY
     Dates: end: 2013
  3. NORVASC [Suspect]
     Dosage: 5 MG, 1X/DAY
     Dates: start: 2013
  4. LIPITOR [Concomitant]
     Indication: BLOOD CHOLESTEROL INCREASED
     Dosage: 10 MG, 1X/DAY
     Dates: start: 1998
  5. ACCUPRIL [Concomitant]
     Indication: HYPERTENSION
     Dosage: 40 MG, 1X/DAY

REACTIONS (5)
  - Hypoacusis [Unknown]
  - Local swelling [Unknown]
  - Hypertension [Unknown]
  - Anxiety [Unknown]
  - Drug ineffective [Unknown]
